FAERS Safety Report 24967968 (Version 1)
Quarter: 2025Q1

REPORT INFORMATION
  Report Type: Report from Study
  Country: JP (occurrence: JP)
  Receive Date: 20250214
  Receipt Date: 20250214
  Transmission Date: 20250408
  Serious: Yes (Hospitalization)
  Sender: ARDELYX
  Company Number: JP-ARDELYX-2025ARDX000842

PATIENT
  Age: 47 Year
  Sex: Male
  Weight: 74.1 kg

DRUGS (9)
  1. TENAPANOR HYDROCHLORIDE [Suspect]
     Active Substance: TENAPANOR HYDROCHLORIDE
     Indication: Hyperphosphataemia
     Route: 048
     Dates: start: 20240720, end: 20241014
  2. CALCIUM CARBONATE [Concomitant]
     Active Substance: CALCIUM CARBONATE
     Indication: Product used for unknown indication
     Route: 065
     Dates: end: 20241014
  3. LANTHANUM CARBONATE [Concomitant]
     Active Substance: LANTHANUM CARBONATE
     Indication: Product used for unknown indication
     Route: 065
     Dates: end: 20241014
  4. MAXACALCITOL [Concomitant]
     Active Substance: MAXACALCITOL
     Indication: Product used for unknown indication
     Route: 065
     Dates: end: 20241014
  5. PARSABIV [Concomitant]
     Active Substance: ETELCALCETIDE HYDROCHLORIDE
     Indication: Product used for unknown indication
     Route: 065
     Dates: end: 20241014
  6. RABEPRAZOLE SODIUM [Concomitant]
     Active Substance: RABEPRAZOLE SODIUM
     Indication: Product used for unknown indication
     Route: 065
  7. PITAVASTATIN CALCIUM [Concomitant]
     Active Substance: PITAVASTATIN CALCIUM
     Indication: Product used for unknown indication
     Route: 065
  8. BISOPROLOL [Concomitant]
     Active Substance: BISOPROLOL
     Indication: Product used for unknown indication
     Route: 065
  9. ASPIRIN [Concomitant]
     Active Substance: ASPIRIN
     Indication: Product used for unknown indication
     Route: 065

REACTIONS (1)
  - Renal transplant [Unknown]

NARRATIVE: CASE EVENT DATE: 20241017
